FAERS Safety Report 11639522 (Version 1)
Quarter: 2015Q4

REPORT INFORMATION
  Report Type: Spontaneous
  Country: US (occurrence: US)
  Receive Date: 20151019
  Receipt Date: 20151019
  Transmission Date: 20160304
  Serious: No
  Sender: FDA-Public Use
  Company Number: PHEH2015US002498

PATIENT
  Sex: Female

DRUGS (1)
  1. ZOMETA [Suspect]
     Active Substance: ZOLEDRONIC ACID
     Indication: METASTASES TO BONE
     Dosage: UNK UKN, UNK
     Route: 065

REACTIONS (8)
  - Eating disorder [Unknown]
  - Myalgia [Unknown]
  - Dry mouth [Unknown]
  - Hyperhidrosis [Unknown]
  - Insomnia [Unknown]
  - Pyrexia [Unknown]
  - Stomatitis [Unknown]
  - Arthralgia [Unknown]
